FAERS Safety Report 22132079 (Version 5)
Quarter: 2024Q1

REPORT INFORMATION
  Report Type: Spontaneous
  Country: US (occurrence: US)
  Receive Date: 20230323
  Receipt Date: 20240322
  Transmission Date: 20240410
  Serious: No
  Sender: FDA-Public Use
  Company Number: US-VIIV HEALTHCARE LIMITED-US2023AMR041864

PATIENT
  Age: 37 Year

DRUGS (4)
  1. RILPIVIRINE [Suspect]
     Active Substance: RILPIVIRINE
     Indication: HIV infection
     Dosage: UNK, Q2M, EVERY 2 MONTHS
     Route: 065
     Dates: start: 20220926
  2. CABOTEGRAVIR [Suspect]
     Active Substance: CABOTEGRAVIR
     Indication: HIV infection
     Dosage: UNK, Q2M, EVERY 2 MONTHS
     Route: 065
     Dates: start: 20220926
  3. ESTROGENS [Suspect]
     Active Substance: ESTROGENS
     Indication: Product used for unknown indication
     Dosage: UNK
  4. WEGOVY [Concomitant]
     Active Substance: SEMAGLUTIDE
     Indication: Weight decreased
     Dosage: UNK
     Dates: start: 202304

REACTIONS (7)
  - Musculoskeletal pain [Not Recovered/Not Resolved]
  - Injection site pain [Unknown]
  - Injection site mass [Unknown]
  - COVID-19 [Recovered/Resolved]
  - Abdominal discomfort [Not Recovered/Not Resolved]
  - Tooth fracture [Not Recovered/Not Resolved]
  - Migraine [Not Recovered/Not Resolved]

NARRATIVE: CASE EVENT DATE: 20230901
